FAERS Safety Report 13786079 (Version 1)
Quarter: 2017Q3

REPORT INFORMATION
  Report Type: Report from Study
  Country: US (occurrence: US)
  Receive Date: 20170725
  Receipt Date: 20170725
  Transmission Date: 20171127
  Serious: Yes (Hospitalization, Other)
  Sender: FDA-Public Use
  Company Number: GXBR2017US002239

PATIENT
  Age: 16 Year
  Sex: Female
  Weight: 57 kg

DRUGS (11)
  1. METHOTREXATE SODIUM. [Suspect]
     Active Substance: METHOTREXATE SODIUM
     Dosage: 20 UNK, UNK
     Route: 058
     Dates: start: 201506, end: 201603
  2. TOBRADEX [Concomitant]
     Active Substance: DEXAMETHASONE\TOBRAMYCIN
     Indication: PRODUCT USED FOR UNKNOWN INDICATION
     Dosage: UNK DF, UNK
     Route: 065
     Dates: start: 201204, end: 201311
  3. FOLIC [Concomitant]
     Active Substance: FOLIC ACID
     Indication: PROPHYLAXIS
     Dosage: 1 MG, QD
     Dates: start: 201211, end: 201501
  4. HUMIRA [Suspect]
     Active Substance: ADALIMUMAB
     Indication: JUVENILE IDIOPATHIC ARTHRITIS
     Dosage: 40 MG, UNK
     Route: 058
     Dates: start: 20120112, end: 201407
  5. TOBRADEX [Concomitant]
     Active Substance: DEXAMETHASONE\TOBRAMYCIN
     Dosage: UNK DF, UNK
     Route: 065
     Dates: start: 201501, end: 201605
  6. ARISTOSPAN [Concomitant]
     Active Substance: TRIAMCINOLONE HEXACETONIDE
     Dosage: 40 MG, ONCE/SINGLE
     Route: 065
     Dates: start: 20150109, end: 20150109
  7. PRED FORTE [Concomitant]
     Active Substance: PREDNISOLONE ACETATE
     Indication: UVEITIS
     Dosage: 6 DRP, UNK
     Route: 065
     Dates: start: 201501
  8. METHOTREXATE SODIUM. [Suspect]
     Active Substance: METHOTREXATE SODIUM
     Indication: JUVENILE IDIOPATHIC ARTHRITIS
     Dosage: 20 MG, UNK
     Route: 058
     Dates: start: 200211, end: 201412
  9. METHOTREXATE SODIUM. [Suspect]
     Active Substance: METHOTREXATE SODIUM
     Dosage: 20 UNK, UNK
     Route: 058
     Dates: start: 201502, end: 201504
  10. TOBRADEX [Concomitant]
     Active Substance: DEXAMETHASONE\TOBRAMYCIN
     Dosage: UNK DF, UNK
     Route: 065
     Dates: start: 201409, end: 201410
  11. FOLIC [Concomitant]
     Active Substance: FOLIC ACID
     Dosage: 1 MG, QD
     Dates: start: 201507, end: 201601

REACTIONS (3)
  - Device related infection [Unknown]
  - Device related infection [Recovered/Resolved]
  - Device related infection [Unknown]

NARRATIVE: CASE EVENT DATE: 201409
